FAERS Safety Report 23958270 (Version 1)
Quarter: 2024Q2

REPORT INFORMATION
  Report Type: Spontaneous
  Country: GB (occurrence: GB)
  Receive Date: 20240610
  Receipt Date: 20240610
  Transmission Date: 20240716
  Serious: Yes (Other)
  Sender: FDA-Public Use
  Company Number: GB-MHRA-TPP5359040C21995217YC1717494052413

PATIENT
  Age: 53 Year
  Sex: Female
  Weight: 77 kg

DRUGS (9)
  1. CANDESARTAN [Suspect]
     Active Substance: CANDESARTAN
     Indication: Product used for unknown indication
     Dosage: UNK
     Route: 065
  2. DULOXETINE [Concomitant]
     Active Substance: DULOXETINE
     Dosage: 1 DOSAGE FORM, QD
     Route: 065
     Dates: start: 20240311
  3. ENALAPRIL [Concomitant]
     Active Substance: ENALAPRIL
     Dosage: 1 DOSAGE FORM, QD
     Route: 065
     Dates: start: 20240311
  4. NAPROXEN [Concomitant]
     Active Substance: NAPROXEN
     Dosage: 1 DOSAGE FORM, BID (TAKE ONE TWICE DAILY- WITH FOOD)
     Route: 065
     Dates: start: 20240520
  5. ACETAMINOPHEN [Concomitant]
     Active Substance: ACETAMINOPHEN
     Dosage: 2 DOSAGE FORM (TAKE 2 TABLETS AS REQUIRED, MAX 4 TIMES/DAY)
     Route: 065
     Dates: start: 20240311
  6. ATENOLOL [Concomitant]
     Active Substance: ATENOLOL
     Dosage: 1 DOSAGE FORM, QD
     Route: 065
     Dates: start: 20230117
  7. HYDROXOCOBALAMIN [Concomitant]
     Active Substance: HYDROXOCOBALAMIN
     Dosage: 1 MILLIGRAM (1MG TO BE GIVEN BY INTRAMUSCULAR INJECTION EVER)
     Route: 030
     Dates: start: 20230505
  8. AMLODIPINE [Concomitant]
     Active Substance: AMLODIPINE BESYLATE
     Dosage: 1 DOSAGE FORM, QD
     Route: 065
     Dates: start: 20231208
  9. OMEPRAZOLE [Concomitant]
     Active Substance: DONEPEZIL HYDROCHLORIDE\OMEPRAZOLE\OMEPRAZOLE MAGNESIUM
     Indication: Gastrointestinal disorder prophylaxis
     Dosage: 1 DOSAGE FORM QD, (TO PROTECT STOMACH AGAINST NAPROXEN)
     Route: 065
     Dates: start: 20240411

REACTIONS (2)
  - Swelling face [Recovered/Resolved]
  - Urticaria [Unknown]
